FAERS Safety Report 21191137 (Version 2)
Quarter: 2022Q3

REPORT INFORMATION
  Report Type: Report from Study
  Country: US (occurrence: US)
  Receive Date: 20220809
  Receipt Date: 20220904
  Transmission Date: 20221026
  Serious: Yes (Other)
  Sender: FDA-Public Use
  Company Number: US-BRISTOL-MYERS SQUIBB COMPANY-2022-083260

PATIENT
  Age: 81 Year
  Sex: Female
  Weight: 70.31 kg

DRUGS (2)
  1. POMALYST [Suspect]
     Active Substance: POMALIDOMIDE
     Indication: Plasma cell myeloma
     Dosage: 1 CAPSULE DAILY
     Route: 048
  2. POMALYST [Suspect]
     Active Substance: POMALIDOMIDE
     Dosage: DAILY FOR 21 DAYS THAN 7 DAYS OFF
     Route: 048

REACTIONS (2)
  - Carpal tunnel syndrome [Unknown]
  - Cystitis [Unknown]

NARRATIVE: CASE EVENT DATE: 20220715
